FAERS Safety Report 22067048 (Version 1)
Quarter: 2023Q1

REPORT INFORMATION
  Report Type: Spontaneous
  Country: ES (occurrence: ES)
  Receive Date: 20230306
  Receipt Date: 20230306
  Transmission Date: 20230417
  Serious: Yes (Hospitalization, Other)
  Sender: FDA-Public Use
  Company Number: ES-NOVOPROD-1020371

PATIENT
  Age: 57 Year
  Sex: Male

DRUGS (2)
  1. OZEMPIC [Suspect]
     Active Substance: SEMAGLUTIDE
     Indication: Type 2 diabetes mellitus
     Dosage: 1 MG, QW(4 DOSES OF 0.25 MG )
  2. OZEMPIC [Suspect]
     Active Substance: SEMAGLUTIDE
     Dosage: ADMINISTERED THE WHOLE PEN, INCLUDING REMAINING DOSES (TOTAL OF 6 DOSES)

REACTIONS (5)
  - Necrosis [Not Recovered/Not Resolved]
  - Diabetes mellitus inadequate control [Not Recovered/Not Resolved]
  - Decreased appetite [Unknown]
  - Extra dose administered [Unknown]
  - Off label use [Unknown]
